FAERS Safety Report 7701701-X (Version None)
Quarter: 2011Q3

REPORT INFORMATION
  Report Type: 
  Country: None (occurrence: None)
  Receive Date: 20110822
  Receipt Date: 20110809
  Transmission Date: 20111222
  Serious: No
  Sender: FDA-Public Use
  Company Number: US-B.I. PHARMACEUTICALS,INC./RIDGEFIELD-2011-BP-19674PF

PATIENT
  Sex: Male

DRUGS (2)
  1. ATROVENT HFA [Suspect]
     Route: 065
  2. SPIRIVA [Suspect]
     Route: 065

REACTIONS (2)
  - DRUG INTERACTION [None]
  - DRUG INEFFECTIVE [None]
